FAERS Safety Report 14423567 (Version 39)
Quarter: 2022Q2

REPORT INFORMATION
  Report Type: Spontaneous
  Country: US (occurrence: US)
  Receive Date: 20180123
  Receipt Date: 20220623
  Transmission Date: 20220721
  Serious: Yes (Other)
  Sender: FDA-Public Use
  Company Number: US-PFIZER INC-2018026203

PATIENT
  Age: 68 Year
  Sex: Male
  Weight: 86.18 kg

DRUGS (7)
  1. NICOTROL [Suspect]
     Active Substance: NICOTINE
     Indication: Smoking cessation therapy
     Dosage: 2 DF, AS NEEDED (ONE SPRAY IN EACH NOSTRIL AS NEEDED)
     Route: 045
  2. NICOTROL [Suspect]
     Active Substance: NICOTINE
     Dosage: 2 DF, AS NEEDED (ONE SPRAY IN EACH NOSTRIL AS NEEDED)
     Route: 045
  3. NICOTROL [Suspect]
     Active Substance: NICOTINE
     Dosage: 2 DF, AS NEEDED (1 SPRAY INTO EACH NOSTRIL EVERY 15 MINUTES AS NEEDED, NO MORE THAN 40 DOSES/24H)
     Route: 045
  4. NICOTROL [Suspect]
     Active Substance: NICOTINE
     Dosage: 2 DF (10MG/ML:1 SPRAY IN EACH NOSTRIL, NO MORE THAN 40 DOSES/24HRS)
     Route: 045
  5. GLIPIZIDE [Concomitant]
     Active Substance: GLIPIZIDE
     Dosage: UNK
  6. TRULICITY [Concomitant]
     Active Substance: DULAGLUTIDE
     Dosage: UNK, WEEKLY (ONCE PER WEEK)
  7. ASPIRIN [Concomitant]
     Active Substance: ASPIRIN
     Dosage: TOOK 30 ASPIRIN

REACTIONS (24)
  - Deafness [Unknown]
  - Type 2 diabetes mellitus [Unknown]
  - Choking [Unknown]
  - Therapeutic product effect incomplete [Unknown]
  - Intentional product misuse [Unknown]
  - Incorrect dose administered [Unknown]
  - Product complaint [Unknown]
  - Product dispensing error [Unknown]
  - Wrong technique in product usage process [Unknown]
  - Overdose [Unknown]
  - Stress [Unknown]
  - Feeling abnormal [Unknown]
  - Chest pain [Unknown]
  - Headache [Unknown]
  - Drooling [Unknown]
  - Malaise [Unknown]
  - Toothache [Unknown]
  - Tooth disorder [Not Recovered/Not Resolved]
  - Mental disorder [Not Recovered/Not Resolved]
  - Eating disorder [Unknown]
  - Throat irritation [Unknown]
  - Fatigue [Unknown]
  - Dyspnoea [Unknown]
  - Productive cough [Unknown]
